FAERS Safety Report 5157316-3 (Version None)
Quarter: 2006Q4

REPORT INFORMATION
  Report Type: 
  Country: None (occurrence: None)
  Receive Date: 20061127
  Receipt Date: 20041216
  Transmission Date: 20070319
  Serious: Yes (Hospitalization)
  Sender: FDA-Public Use
  Company Number: PH-ROCHE-389488

PATIENT
  Age: 62 Year
  Sex: Female

DRUGS (3)
  1. CAPECITABINE [Suspect]
     Indication: BREAST CANCER
     Dosage: GIVEN DAILY FOR 14 DAYS FOLLOWED BY 7 DAYS REST. THERAPY DURATION WAS REPORTED AS 76 DAYS INTERMITT+
     Route: 048
     Dates: start: 20040908, end: 20041117
  2. IXABEPILONE [Suspect]
     Indication: BREAST CANCER
     Route: 042
     Dates: start: 20040908, end: 20041108
  3. IXABEPILONE [Suspect]
     Dosage: REDUCED DOSE
     Route: 042
     Dates: start: 20041113, end: 20041122

REACTIONS (14)
  - ASTHENIA [None]
  - BONE MARROW FAILURE [None]
  - DISORIENTATION [None]
  - DIZZINESS [None]
  - HEADACHE [None]
  - HYPONATRAEMIA [None]
  - MUCOSAL INFLAMMATION [None]
  - NAUSEA [None]
  - NEUROPATHY PERIPHERAL [None]
  - PALMAR-PLANTAR ERYTHRODYSAESTHESIA SYNDROME [None]
  - PNEUMONIA [None]
  - TACHYPNOEA [None]
  - THROMBOCYTOPENIA [None]
  - VOMITING [None]
